FAERS Safety Report 16310430 (Version 1)
Quarter: 2019Q2

REPORT INFORMATION
  Report Type: Spontaneous
  Country: US (occurrence: US)
  Receive Date: 20190409
  Receipt Date: 20190409
  Transmission Date: 20190711
  Serious: No
  Sender: FDA-Public Use
  Company Number: None

PATIENT
  Sex: Male

DRUGS (1)
  1. TALTZ [Suspect]
     Active Substance: IXEKIZUMAB
     Indication: DERMATITIS
     Route: 058
     Dates: start: 20190126

REACTIONS (3)
  - Psoriasis [None]
  - Alopecia [None]
  - Disease progression [None]
